FAERS Safety Report 9114440 (Version 1)
Quarter: 2013Q1

REPORT INFORMATION
  Report Type: Spontaneous
  Country: US (occurrence: US)
  Receive Date: 20130208
  Receipt Date: 20130208
  Transmission Date: 20140127
  Serious: Yes (Hospitalization, Disabling)
  Sender: FDA-Public Use
  Company Number: US-ELI_LILLY_AND_COMPANY-US201301010432

PATIENT
  Sex: Male

DRUGS (5)
  1. HUMALOG 50% LISPRO, 50% NPL [Suspect]
     Indication: TYPE 1 DIABETES MELLITUS
     Dosage: 30 U, TID
     Dates: start: 200901, end: 201301
  2. LANTUS [Concomitant]
  3. SIMVASTATIN [Concomitant]
  4. LISINOPRIL [Concomitant]
  5. NORCO [Concomitant]

REACTIONS (2)
  - Bone disorder [Recovered/Resolved]
  - Cartilage injury [Not Recovered/Not Resolved]
